FAERS Safety Report 25375428 (Version 3)
Quarter: 2025Q2

REPORT INFORMATION
  Report Type: Spontaneous
  Country: FR (occurrence: FR)
  Receive Date: 20250529
  Receipt Date: 20250619
  Transmission Date: 20250716
  Serious: Yes (Other)
  Sender: APELLIS PHARMACEUTICALS
  Company Number: FR-BIOVITRUM-2024-FR-009452

PATIENT

DRUGS (1)
  1. PEGCETACOPLAN [Suspect]
     Active Substance: PEGCETACOPLAN
     Indication: C3 glomerulopathy

REACTIONS (4)
  - Thrombotic microangiopathy [Unknown]
  - Disease progression [Unknown]
  - C3 glomerulopathy [Unknown]
  - Off label use [Not Recovered/Not Resolved]
